FAERS Safety Report 5080945-2 (Version None)
Quarter: 2006Q3

REPORT INFORMATION
  Report Type: 
  Country: None (occurrence: None)
  Receive Date: 20060810
  Receipt Date: 20060801
  Transmission Date: 20061208
  Serious: Yes (Hospitalization, Other)
  Sender: FDA-Public Use
  Company Number: 2006-07-0092

PATIENT
  Age: 46 Year
  Sex: Female

DRUGS (3)
  1. CLARITIN REDITABS [Suspect]
     Indication: DERMATITIS ALLERGIC
     Dosage: 10 MG ORAL
     Route: 048
     Dates: start: 20060630, end: 20060703
  2. CELESTAMINE TAB [Suspect]
     Indication: DERMATITIS ALLERGIC
     Dosage: 1 TAB ORAL
     Route: 048
     Dates: start: 20060630, end: 20060703
  3. KLARACID TABLETS [Suspect]
     Indication: DERMATITIS ALLERGIC
     Dosage: 400 MG ORAL
     Route: 048
     Dates: start: 20060630, end: 20060703

REACTIONS (1)
  - MYOCLONIC EPILEPSY [None]
